FAERS Safety Report 7586860-4 (Version None)
Quarter: 2011Q3

REPORT INFORMATION
  Report Type: 
  Country: None (occurrence: None)
  Receive Date: 20110701
  Receipt Date: 20110627
  Transmission Date: 20111222
  Serious: Yes (Hospitalization)
  Sender: FDA-Public Use
  Company Number: US-B.I. PHARMACEUTICALS,INC./RIDGEFIELD-2011-BP-16425BP

PATIENT
  Age: 80 Year
  Sex: Female

DRUGS (9)
  1. COUMADIN [Concomitant]
     Indication: ATRIAL FIBRILLATION
     Dosage: 5 MG
     Route: 048
     Dates: start: 20110220
  2. ASPIRIN [Concomitant]
     Indication: ATRIAL FIBRILLATION
     Dosage: 81 MG
     Route: 048
  3. ATENOLOL [Concomitant]
     Indication: HYPERTENSION
     Dosage: 50 MG
     Route: 048
  4. WELCHOL [Concomitant]
     Indication: BLOOD CHOLESTEROL INCREASED
     Dosage: 375 MG
     Route: 048
  5. NIASPAN [Concomitant]
     Indication: BLOOD CHOLESTEROL INCREASED
     Dosage: 500 MG
     Route: 048
  6. PRADAXA [Suspect]
     Indication: ATRIAL FIBRILLATION
     Dosage: 300 MG
     Route: 048
     Dates: start: 20110101, end: 20110217
  7. TOPROL-XL [Concomitant]
     Indication: HYPERTENSION
     Dosage: 250 MG
     Route: 048
  8. CARDIZEM [Concomitant]
     Indication: ATRIAL FIBRILLATION
     Dosage: 360 MG
     Route: 048
  9. MICARDIS [Concomitant]
     Indication: HYPERTENSION
     Route: 048

REACTIONS (4)
  - DIVERTICULUM [None]
  - GASTROINTESTINAL HAEMORRHAGE [None]
  - RED BLOOD CELL COUNT DECREASED [None]
  - MELAENA [None]
